FAERS Safety Report 5393077-0 (Version None)
Quarter: 2007Q3

REPORT INFORMATION
  Report Type: 
  Country: None (occurrence: None)
  Receive Date: 20070719
  Receipt Date: 20070423
  Transmission Date: 20080115
  Serious: Yes (Death)
  Sender: FDA-Public Use
  Company Number: E2090-00274-CLI-JP

PATIENT
  Age: 72 Year
  Sex: Female

DRUGS (10)
  1. ZONISAMIDE [Suspect]
     Indication: PARKINSON'S DISEASE
     Dosage: DOUBLE BLIND, 1 IN 1 D, ORAL
     Route: 048
     Dates: start: 20070411, end: 20070411
  2. SYMMETREL [Suspect]
     Indication: PARKINSON'S DISEASE
     Dosage: ORAL
     Route: 048
     Dates: start: 20070421
  3. NEODOPASOL (MADOPAR) [Suspect]
     Indication: PARKINSON'S DISEASE
     Dosage: ORAL
     Dates: start: 20070421
  4. CABERGOLINE [Suspect]
     Indication: PARKINSON'S DISEASE
  5. LUPRAC (TORASEMIDE) [Suspect]
     Indication: OEDEMA
  6. FERROMIA (FERROUS CITRATE) [Concomitant]
  7. OMEPRAZOLE [Concomitant]
  8. DOPS (DROXIDOPA) [Concomitant]
  9. ARICEPT [Concomitant]
  10. GASMOTIN (MOSAPRIDE CITRATE) [Concomitant]

REACTIONS (3)
  - CARDIAC ARREST [None]
  - MYDRIASIS [None]
  - SUDDEN CARDIAC DEATH [None]
